FAERS Safety Report 9678346 (Version 3)
Quarter: 2013Q4

REPORT INFORMATION
  Report Type: Spontaneous
  Country: US (occurrence: None)
  Receive Date: 20131106
  Receipt Date: 20131126
  Transmission Date: 20140711
  Serious: Yes (Hospitalization, Other)
  Sender: FDA-Public Use
  Company Number: ADR-2013-02010

PATIENT
  Age: 37 Year
  Sex: Male

DRUGS (2)
  1. GABLOFEN [Suspect]
     Indication: MUSCLE SPASTICITY
  2. ORAL MEDICATION (UNSPECIFIED) [Suspect]

REACTIONS (11)
  - Device connection issue [None]
  - Urinary tract infection [None]
  - Pyrexia [None]
  - Chills [None]
  - Muscle spasticity [None]
  - Device connection issue [None]
  - Malaise [None]
  - Muscle spasms [None]
  - Dysarthria [None]
  - Somnolence [None]
  - CSF test abnormal [None]
